FAERS Safety Report 9260956 (Version 1)
Quarter: 2013Q1

REPORT INFORMATION
  Report Type: Spontaneous
  Country: US (occurrence: None)
  Receive Date: 20121212
  Receipt Date: 20121212
  Transmission Date: 20140127
  Serious: No
  Sender: FDA-Public Use
  Company Number: 1209USA002582

PATIENT
  Age: 53 Year
  Sex: Female

DRUGS (9)
  1. OMEGA-3 MARINE TRIGLYCERIDES (OMEGA-3 MARINE TRIGLYCERIDES) [Concomitant]
  2. CVS GLUCOSAMINE CHONDROITIN REGULAR STRENGTH (CHONDROITIN SULFATE SODIUM, GLUCOSAMINE HYDROCHLORIDE) [Concomitant]
  3. OMEPRAZOLE SODIUM (OMEPRAZOLE SODIUM) TABLET [Concomitant]
  4. VICTRELIS [Suspect]
     Indication: HEPATITIS C
     Dosage: 800 MG, THREE TIMES A DAY, ORAL
     Route: 048
     Dates: start: 201208
  5. RIBASPHERE [Suspect]
  6. CELEBREX (CELECOXIB) [Concomitant]
  7. ADVAIR (FLUTICASONE PROPIONATE, SALMETEROL XINAFOATE) [Concomitant]
  8. ALBUTEROL (ALBUTEROL) [Concomitant]
  9. VITAMIN D (UNSPECIFIED) (VITAMIN D (UNSPECIFIED)) [Concomitant]

REACTIONS (6)
  - Sinus congestion [None]
  - Epistaxis [None]
  - Pruritus generalised [None]
  - Alopecia [None]
  - Hair texture abnormal [None]
  - Sinus headache [None]
